FAERS Safety Report 4810526-4 (Version None)
Quarter: 2005Q4

REPORT INFORMATION
  Report Type: 
  Country: None (occurrence: None)
  Receive Date: 20051025
  Receipt Date: 20051025
  Transmission Date: 20060501
  Serious: Yes (Other)
  Sender: FDA-Public Use
  Company Number: None

PATIENT
  Age: 78 Year
  Sex: Male
  Weight: 73.9 kg

DRUGS (8)
  1. METFORMIN HCL [Suspect]
  2. ALLOPURINOL [Concomitant]
  3. SIMVASTATIN [Concomitant]
  4. VERAPAMIL HCL [Concomitant]
  5. TRAVOPROST [Concomitant]
  6. BRIMONIDINE TARTRATE [Concomitant]
  7. DORZOLAMIDE HCL [Concomitant]
  8. METFORMIN HCL [Concomitant]

REACTIONS (1)
  - GASTROINTESTINAL DISORDER [None]
